FAERS Safety Report 20484530 (Version 2)
Quarter: 2022Q1

REPORT INFORMATION
  Report Type: Spontaneous
  Country: US (occurrence: US)
  Receive Date: 20220217
  Receipt Date: 20220328
  Transmission Date: 20220423
  Serious: No
  Sender: FDA-Public Use
  Company Number: US-VERTEX PHARMACEUTICALS-2022-002765

PATIENT
  Age: 37 Year
  Sex: Male

DRUGS (1)
  1. TRIKAFTA [Suspect]
     Active Substance: ELEXACAFTOR\IVACAFTOR\TEZACAFTOR
     Indication: Cystic fibrosis
     Dosage: FREQ UNK
     Route: 048
     Dates: start: 20200128

REACTIONS (4)
  - General physical health deterioration [Not Recovered/Not Resolved]
  - Laryngeal haemorrhage [Unknown]
  - Laryngeal injury [Unknown]
  - Laryngitis [Unknown]

NARRATIVE: CASE EVENT DATE: 20220201
